FAERS Safety Report 9219673 (Version 1)
Quarter: 2013Q2

REPORT INFORMATION
  Report Type: Spontaneous
  Country: JP (occurrence: JP)
  Receive Date: 20130409
  Receipt Date: 20130409
  Transmission Date: 20140414
  Serious: Yes (Other)
  Sender: FDA-Public Use
  Company Number: JP-SANOFI-AVENTIS-2013SA036636

PATIENT
  Age: 76 Year
  Sex: Male

DRUGS (2)
  1. MYSLEE [Suspect]
     Indication: PRODUCT USED FOR UNKNOWN INDICATION
     Dosage: TREATMENT END DATE: 29-MARCH-2013
     Route: 048
     Dates: start: 2012, end: 20130329
  2. DEPAS [Concomitant]
     Route: 048

REACTIONS (4)
  - Loss of consciousness [Unknown]
  - Anterograde amnesia [Unknown]
  - Fear [Unknown]
  - Accidental exposure to product [Unknown]
